FAERS Safety Report 9639220 (Version 1)
Quarter: 2013Q4

REPORT INFORMATION
  Report Type: Spontaneous
  Country: US (occurrence: None)
  Receive Date: 20131009
  Receipt Date: 20131009
  Transmission Date: 20140711
  Serious: No
  Sender: FDA-Public Use
  Company Number: 003-146

PATIENT
  Age: 22 Year
  Sex: Female

DRUGS (1)
  1. CROFAB (BTG INTERNATIONAL, INC) [Suspect]
     Indication: SNAKE BITE
     Dosage: 8 VIALS TOTAL
     Dates: start: 20120826

REACTIONS (2)
  - Thrombocytopenia [None]
  - Haemoglobin decreased [None]
